FAERS Safety Report 25858663 (Version 1)
Quarter: 2025Q3

REPORT INFORMATION
  Report Type: Spontaneous
  Country: US (occurrence: None)
  Receive Date: 20250927
  Receipt Date: 20250927
  Transmission Date: 20251020
  Serious: Yes (Hospitalization)
  Sender: FDA-CTU
  Company Number: None

PATIENT
  Age: 13 Year
  Sex: Female

DRUGS (1)
  1. HUMIRA [Suspect]
     Active Substance: ADALIMUMAB
     Indication: Osteomyelitis chronic
     Dosage: FREQUENCY : EVERY OTHER WEEK;?

REACTIONS (3)
  - Sinus operation [None]
  - Uterine operation [None]
  - Postural orthostatic tachycardia syndrome [None]
